FAERS Safety Report 7440679-3 (Version None)
Quarter: 2011Q2

REPORT INFORMATION
  Report Type: 
  Country: None (occurrence: None)
  Receive Date: 20110427
  Receipt Date: 20110418
  Transmission Date: 20111010
  Serious: Yes (Hospitalization)
  Sender: FDA-Public Use
  Company Number: NL-GENENTECH-317167

PATIENT
  Sex: Female
  Weight: 77 kg

DRUGS (4)
  1. DEXAMETHASONE [Suspect]
     Indication: MALIGNANT LYMPHOID NEOPLASM
     Dosage: 190 MG, UNK
     Route: 042
     Dates: start: 20110407
  2. RITUXIMAB [Suspect]
     Indication: MALIGNANT LYMPHOID NEOPLASM
     Dosage: 715 MG, UNK
     Route: 042
     Dates: start: 20110406
  3. CYTARABINE [Suspect]
     Indication: MALIGNANT LYMPHOID NEOPLASM
     Dosage: 3800 MG, UNK
     Route: 042
     Dates: start: 20110408
  4. CISPLATIN [Suspect]
     Indication: MALIGNANT LYMPHOID NEOPLASM
     Dosage: 40 MG, UNK
     Route: 042
     Dates: start: 20110407

REACTIONS (1)
  - EPISTAXIS [None]
